FAERS Safety Report 11569334 (Version 2)
Quarter: 2015Q4

REPORT INFORMATION
  Report Type: Report from Study
  Country: DE (occurrence: DE)
  Receive Date: 20150929
  Receipt Date: 20151118
  Transmission Date: 20160304
  Serious: Yes (Life-Threatening, Hospitalization, Other)
  Sender: FDA-Public Use
  Company Number: PHHY2015DE092246

PATIENT
  Sex: Male
  Weight: 98 kg

DRUGS (11)
  1. SIMVA [Concomitant]
     Indication: PRODUCT USED FOR UNKNOWN INDICATION
     Dosage: 20 MG, QD (0-0-1)
     Route: 065
     Dates: start: 20140102
  2. BRILIQUE [Concomitant]
     Active Substance: TICAGRELOR
     Indication: PRODUCT USED FOR UNKNOWN INDICATION
     Dosage: 90 MG, BID (1-0-1)
     Route: 065
     Dates: start: 20140102
  3. ORELOX [Concomitant]
     Active Substance: CEFPODOXIME
     Indication: PRODUCT USED FOR UNKNOWN INDICATION
     Dosage: 200 OT, BID
     Route: 065
     Dates: start: 20140102
  4. PANTOPRAZOL BETA [Concomitant]
     Indication: PRODUCT USED FOR UNKNOWN INDICATION
     Dosage: 40 MG, QD (1-0-0)
     Route: 065
     Dates: start: 20140102
  5. METOPROLOL SUCCINAT BETA [Concomitant]
     Indication: PRODUCT USED FOR UNKNOWN INDICATION
     Dosage: 47.5 OT, BID (1-0-1)
     Route: 065
     Dates: start: 20140102
  6. ASPIRIN. [Concomitant]
     Active Substance: ASPIRIN
     Indication: PRODUCT USED FOR UNKNOWN INDICATION
     Dosage: 100 MG, QD (0-1-0)
     Route: 065
  7. QVA149 [Suspect]
     Active Substance: INVESTIGATIONAL PRODUCT
     Indication: CHRONIC OBSTRUCTIVE PULMONARY DISEASE
     Dosage: 1 DF (110 ?G/50 ?G), QD
     Route: 055
     Dates: start: 20150126
  8. AMLODIPINE [Concomitant]
     Active Substance: AMLODIPINE BESYLATE
     Indication: PRODUCT USED FOR UNKNOWN INDICATION
     Dosage: 5 MG, BID (1-0-1)
     Route: 065
     Dates: start: 20140102
  9. FOLSAN [Concomitant]
     Active Substance: FOLIC ACID
     Indication: PRODUCT USED FOR UNKNOWN INDICATION
     Dosage: 5 MG, QD (1-0-0)
     Route: 065
  10. RAMIPRIL BETA [Concomitant]
     Indication: PRODUCT USED FOR UNKNOWN INDICATION
     Dosage: 5 MG, QD (1-0-0)
     Route: 065
     Dates: start: 20140102
  11. CEFPO [Concomitant]
     Active Substance: CEFPODOXIME PROXETIL
     Indication: PRODUCT USED FOR UNKNOWN INDICATION
     Dosage: 200 MG, BID (1-0-1)
     Route: 065

REACTIONS (16)
  - Inflammation [Unknown]
  - Decreased appetite [Unknown]
  - Fatigue [Unknown]
  - Metastases to liver [Unknown]
  - Renal cyst [Unknown]
  - Chronic obstructive pulmonary disease [Not Recovered/Not Resolved]
  - Non-small cell lung cancer [Unknown]
  - Weight decreased [Unknown]
  - Prostatomegaly [Unknown]
  - Body temperature decreased [Unknown]
  - Malignant peritoneal neoplasm [Unknown]
  - Cough [Unknown]
  - Metastases to lung [Unknown]
  - Metastases to bone [Unknown]
  - General physical health deterioration [Unknown]
  - Metastases to adrenals [Unknown]

NARRATIVE: CASE EVENT DATE: 201502
